FAERS Safety Report 12589803 (Version 1)
Quarter: 2016Q3

REPORT INFORMATION
  Report Type: Not Available
  Country: None (occurrence: US)
  Receive Date: 20160725
  Receipt Date: 20160725
  Transmission Date: 20161109
  Serious: No
  Sender: FDA-Public Use
  Company Number: US-AKORN-34356

PATIENT
  Sex: Female

DRUGS (1)
  1. PROGESTERONE CAPSULE [Suspect]
     Active Substance: PROGESTERONE

REACTIONS (1)
  - Dysphagia [None]
